FAERS Safety Report 4622759-0 (Version None)
Quarter: 2005Q1

REPORT INFORMATION
  Report Type: 
  Country: None (occurrence: None)
  Receive Date: 20050329
  Receipt Date: 20050329
  Transmission Date: 20050727
  Serious: Yes (Other)
  Sender: FDA-Public Use
  Company Number: None

PATIENT
  Age: 29 Year
  Sex: Female

DRUGS (1)
  1. TRINESSA [Suspect]
     Dosage: 1 TAB DAILY   (ON BRAND FOR YEARS, ON GENERIC FOR 2 WEEKS)

REACTIONS (1)
  - METRORRHAGIA [None]
